FAERS Safety Report 21209881 (Version 7)
Quarter: 2024Q4

REPORT INFORMATION
  Report Type: Report from Study
  Country: US (occurrence: US)
  Receive Date: 20220813
  Receipt Date: 20241016
  Transmission Date: 20250114
  Serious: Yes (Hospitalization, Other)
  Sender: NOVARTIS
  Company Number: US-NOVARTISTESTPH-NVSC2022US183899

PATIENT
  Sex: Female

DRUGS (3)
  1. MAYZENT [Suspect]
     Active Substance: SIPONIMOD
     Indication: Relapsing-remitting multiple sclerosis
     Dosage: 2 MG, QD
     Route: 048
     Dates: start: 20220708
  2. MAYZENT [Suspect]
     Active Substance: SIPONIMOD
     Indication: Clinically isolated syndrome
     Dosage: 2 MG, OTHER 2 MG (1 TAB 0.25MG, DAY 2 1 TAB 0.25MG, DAY 3 2 TABS TOTAL 0.5MG, DAY 4 3 TABS TOTAL 0.7
     Route: 048
     Dates: start: 20230227
  3. MAYZENT [Suspect]
     Active Substance: SIPONIMOD
     Indication: Secondary progressive multiple sclerosis

REACTIONS (8)
  - Pneumonia [Unknown]
  - Femur fracture [Unknown]
  - Lower limb fracture [Unknown]
  - Tibia fracture [Unknown]
  - Multiple sclerosis [Unknown]
  - Visual impairment [Unknown]
  - Product dose omission issue [Unknown]
  - Fatigue [Unknown]
